FAERS Safety Report 14188980 (Version 11)
Quarter: 2018Q2

REPORT INFORMATION
  Report Type: Report from Study
  Country: None (occurrence: BE)
  Receive Date: 20171115
  Receipt Date: 20180608
  Transmission Date: 20180711
  Serious: Yes (Other)
  Sender: FDA-Public Use
  Company Number: BE-ABBVIE-17K-013-2162069-00

PATIENT
  Age: 83 Year
  Sex: Female

DRUGS (17)
  1. DUODOPA [Suspect]
     Active Substance: CARBIDOPA\LEVODOPA
     Dosage: MD=7ML?CD=2.4ML/HR DURING 16HRS ?ED=2.5ML
     Route: 050
     Dates: start: 20171130, end: 20171214
  2. MAGNESIUM [Concomitant]
     Active Substance: MAGNESIUM
     Indication: PRODUCT USED FOR UNKNOWN INDICATION
  3. TEMESTA EXPIDET [Concomitant]
     Active Substance: LORAZEPAM
     Indication: DYSKINESIA
  4. PROLOPA DISP 125 [Concomitant]
     Indication: PRODUCT USED FOR UNKNOWN INDICATION
     Dosage: FORM STRENGTH: 100MG/25MG?AS NEEDED
  5. DUODOPA [Suspect]
     Active Substance: CARBIDOPA\LEVODOPA
     Indication: PARKINSON^S DISEASE
     Dosage: MD=7ML?CD=2.2ML/HR DURING 16HRS ?ED=2.5ML
     Route: 050
     Dates: start: 20171107, end: 20171130
  6. DUODOPA [Suspect]
     Active Substance: CARBIDOPA\LEVODOPA
     Dosage: MD=5ML?CD=2.4ML/HOUR DURING 16HRS?ED=2.5ML
     Route: 050
     Dates: start: 20180119, end: 2018
  7. LORAMET [Concomitant]
     Active Substance: LORMETAZEPAM
     Indication: PRODUCT USED FOR UNKNOWN INDICATION
  8. DUODOPA [Suspect]
     Active Substance: CARBIDOPA\LEVODOPA
     Dosage: MD=5ML?CD=1.4ML/HR DURING 16HRS?ED=2.5ML
     Route: 050
     Dates: start: 20180525
  9. DUODOPA [Suspect]
     Active Substance: CARBIDOPA\LEVODOPA
     Dosage: MD=5ML?CD=1.4ML/HR DURING 16HRS?ED=2.5ML
     Route: 050
     Dates: start: 20180605
  10. CLOZAN [Concomitant]
     Indication: PRODUCT USED FOR UNKNOWN INDICATION
  11. TEMESTA EXPIDET [Concomitant]
     Active Substance: LORAZEPAM
     Indication: NERVOUSNESS
  12. DUODOPA [Suspect]
     Active Substance: CARBIDOPA\LEVODOPA
     Dosage: MD=5ML?CD=1.2ML/HR DURING 16HRS?ED=2.5ML
     Route: 050
     Dates: start: 20180119, end: 20180525
  13. DUODOPA [Suspect]
     Active Substance: CARBIDOPA\LEVODOPA
     Dosage: MD=7ML, CD=2.6ML/HR DURING 16HRS?ED=2.5ML
     Route: 050
     Dates: start: 20171214, end: 20171221
  14. NEXIAM [Concomitant]
     Active Substance: ESOMEPRAZOLE
     Indication: PRODUCT USED FOR UNKNOWN INDICATION
  15. OXYBUTYNINE [Concomitant]
     Active Substance: OXYBUTYNIN CHLORIDE
     Indication: PRODUCT USED FOR UNKNOWN INDICATION
  16. DUODOPA [Suspect]
     Active Substance: CARBIDOPA\LEVODOPA
     Dosage: MD=7ML?CD=2.8ML/HR DURING 16HRS?ED=2.5ML
     Route: 050
     Dates: start: 20171221, end: 20180105
  17. DUODOPA [Suspect]
     Active Substance: CARBIDOPA\LEVODOPA
     Dosage: MD=5ML?CD=2.6ML/HOUR DURING 16HRS?ED=2.5ML
     Route: 050
     Dates: start: 20180105, end: 20180119

REACTIONS (5)
  - Aortic valve stenosis [Unknown]
  - Abdominal pain [Not Recovered/Not Resolved]
  - Pleural effusion [Unknown]
  - On and off phenomenon [Recovered/Resolved]
  - Dyskinesia [Not Recovered/Not Resolved]

NARRATIVE: CASE EVENT DATE: 201711
